FAERS Safety Report 5920069-2 (Version None)
Quarter: 2008Q4

REPORT INFORMATION
  Report Type: 
  Country: None (occurrence: None)
  Receive Date: 20081014
  Receipt Date: 20081006
  Transmission Date: 20090506
  Serious: Yes (Hospitalization)
  Sender: FDA-Public Use
  Company Number: 2008AL008715

PATIENT
  Age: 78 Year
  Sex: Female

DRUGS (13)
  1. DIGOXIN [Suspect]
     Indication: ATRIAL FIBRILLATION
     Dosage: 0.125MG, MON-FR, PO
     Route: 048
  2. TRAMADOL HCL [Suspect]
     Dosage: PO
     Route: 048
  3. SPIRIVA [Concomitant]
  4. XOPENEX [Concomitant]
  5. TRIAMTERENE [Concomitant]
  6. VERAPAMIL [Concomitant]
  7. GABAPENTIN [Concomitant]
  8. SYMBICORT [Concomitant]
  9. VENTOLIN [Concomitant]
  10. ATIVAN [Concomitant]
  11. OXYCODONE HCL [Concomitant]
  12. NAPROSYN [Concomitant]
  13. TYLENOL [Concomitant]

REACTIONS (13)
  - ASTHENIA [None]
  - ATRIAL FIBRILLATION [None]
  - BRADYCARDIA [None]
  - CARDIOACTIVE DRUG LEVEL ABOVE THERAPEUTIC [None]
  - DIZZINESS [None]
  - FATIGUE [None]
  - HEART RATE IRREGULAR [None]
  - INTERNATIONAL NORMALISED RATIO INCREASED [None]
  - MALAISE [None]
  - NEUROPATHY PERIPHERAL [None]
  - PRESYNCOPE [None]
  - THERAPEUTIC AGENT TOXICITY [None]
  - WHITE BLOOD CELL COUNT INCREASED [None]
